FAERS Safety Report 5110554-8 (Version None)
Quarter: 2006Q3

REPORT INFORMATION
  Report Type: 
  Country: None (occurrence: None)
  Receive Date: 20060731
  Receipt Date: 20060608
  Transmission Date: 20061208
  Serious: No
  Sender: FDA-Public Use
  Company Number: 2006PV015569

PATIENT
  Age: 60 Year
  Sex: Male

DRUGS (3)
  1. BYETTA [Suspect]
     Indication: DIABETES MELLITUS NON-INSULIN-DEPENDENT
     Dosage: 5 MCG;BID;SC
     Route: 058
     Dates: start: 20060509
  2. HUMULIN 70/30 [Concomitant]
  3. ACTOS /USA/ [Concomitant]

REACTIONS (3)
  - ANXIETY [None]
  - HEADACHE [None]
  - NAUSEA [None]
